FAERS Safety Report 7729513-1 (Version None)
Quarter: 2011Q3

REPORT INFORMATION
  Report Type: 
  Country: None (occurrence: None)
  Receive Date: 20110906
  Receipt Date: 20110818
  Transmission Date: 20111222
  Serious: No
  Sender: FDA-Public Use
  Company Number: US-ROXANE LABORATORIES, INC.-2011-RO-01088RO

PATIENT
  Sex: Male

DRUGS (2)
  1. BUPRENORPHINE HCL [Suspect]
     Indication: PAIN MANAGEMENT
     Route: 060
  2. BUPROPION HYDROCHLORIDE [Suspect]
     Dosage: 200 MG

REACTIONS (3)
  - BURNING SENSATION [None]
  - DRUG DISPENSING ERROR [None]
  - STOMATITIS [None]
